FAERS Safety Report 26007527 (Version 1)
Quarter: 2025Q4

REPORT INFORMATION
  Report Type: Report from Study
  Country: GB (occurrence: None)
  Receive Date: 20251106
  Receipt Date: 20251106
  Transmission Date: 20260118
  Serious: Yes (Other)
  Sender: UCB
  Company Number: GB-UCBSA-2025068556

PATIENT
  Age: 56 Year

DRUGS (1)
  1. BIMEKIZUMAB [Suspect]
     Active Substance: BIMEKIZUMAB
     Indication: Psoriatic arthropathy
     Dosage: UNK

REACTIONS (3)
  - Psoriatic arthropathy [Unknown]
  - Product distribution issue [Unknown]
  - Therapy interrupted [Unknown]
